FAERS Safety Report 10935086 (Version 1)
Quarter: 2015Q1

REPORT INFORMATION
  Report Type: Report from Study
  Country: AU (occurrence: AU)
  Receive Date: 20150320
  Receipt Date: 20150320
  Transmission Date: 20150721
  Serious: Yes (Hospitalization, Other)
  Sender: FDA-Public Use
  Company Number: AU-ROCHE-1549885

PATIENT

DRUGS (6)
  1. CYCLOSPORIN [Suspect]
     Active Substance: CYCLOSPORINE
     Indication: PROPHYLAXIS AGAINST GRAFT VERSUS HOST DISEASE
     Route: 065
  2. METHOTREXATE [Suspect]
     Active Substance: METHOTREXATE
     Indication: PROPHYLAXIS AGAINST GRAFT VERSUS HOST DISEASE
     Route: 065
  3. TOCILIZUMAB [Suspect]
     Active Substance: TOCILIZUMAB
     Indication: PROPHYLAXIS AGAINST GRAFT VERSUS HOST DISEASE
     Dosage: CAPPED AT AT 800 MG, OVER 60 MINS INFUSION
     Route: 042
  4. MELPHALAN [Suspect]
     Active Substance: MELPHALAN
     Indication: TRANSPLANT REJECTION
     Route: 065
  5. CYCLOPHOSPHAMIDE. [Suspect]
     Active Substance: CYCLOPHOSPHAMIDE
     Indication: PROPHYLAXIS AGAINST TRANSPLANT REJECTION
     Route: 065
  6. FLUDARABINE [Suspect]
     Active Substance: FLUDARABINE PHOSPHATE
     Indication: PROPHYLAXIS AGAINST TRANSPLANT REJECTION
     Route: 065

REACTIONS (34)
  - Klebsiella sepsis [Unknown]
  - Decreased appetite [Unknown]
  - Gastrointestinal infection [Unknown]
  - Pulmonary alveolar haemorrhage [Unknown]
  - Fungal skin infection [Unknown]
  - Rotavirus infection [Unknown]
  - Stomatitis [Unknown]
  - Hyperglycaemia [Unknown]
  - Hypertension [Unknown]
  - Hepatotoxicity [Unknown]
  - Sinusitis [Unknown]
  - Fungal sepsis [Unknown]
  - Bronchopulmonary aspergillosis [Unknown]
  - Hypokalaemia [Unknown]
  - Hepatic enzyme increased [Unknown]
  - Bronchitis [Unknown]
  - Clostridium difficile infection [Unknown]
  - Acute kidney injury [Unknown]
  - Delayed engraftment [Unknown]
  - Nausea [Unknown]
  - Bacterial infection [Unknown]
  - Hyperbilirubinaemia [Unknown]
  - Urinary tract infection [Unknown]
  - Skin ulcer [Unknown]
  - Cytomegalovirus infection [Unknown]
  - Viral infection [Unknown]
  - Hypertriglyceridaemia [Unknown]
  - Device related infection [Unknown]
  - Bacterial sepsis [Unknown]
  - Syncope [Unknown]
  - Diarrhoea [Unknown]
  - Colitis [Unknown]
  - Infection [Unknown]
  - Staphylococcal sepsis [Unknown]
